FAERS Safety Report 13177912 (Version 1)
Quarter: 2017Q1

REPORT INFORMATION
  Report Type: Spontaneous
  Country: US (occurrence: US)
  Receive Date: 20170201
  Receipt Date: 20170201
  Transmission Date: 20170428
  Serious: No
  Sender: FDA-Public Use
  Company Number: None

PATIENT
  Age: 57 Year
  Sex: Female

DRUGS (1)
  1. CAPECITABINE 500 MG ACCORD [Suspect]
     Active Substance: CAPECITABINE
     Indication: PRODUCT USED FOR UNKNOWN INDICATION
     Dosage: 1500 MG BID X7 DAYS, 7 DAYS OFF ORAL
     Route: 048
     Dates: start: 201701

REACTIONS (2)
  - Therapy change [None]
  - Neuropathy peripheral [None]

NARRATIVE: CASE EVENT DATE: 201701
